FAERS Safety Report 19516973 (Version 6)
Quarter: 2022Q1

REPORT INFORMATION
  Report Type: Spontaneous
  Country: US (occurrence: US)
  Receive Date: 20210711
  Receipt Date: 20220127
  Transmission Date: 20220423
  Serious: No
  Sender: FDA-Public Use
  Company Number: US-BRISTOL-MYERS SQUIBB COMPANY-BMS-2021-066899

PATIENT
  Age: 42 Year
  Sex: Female
  Weight: 61.224 kg

DRUGS (7)
  1. SPRYCEL [Suspect]
     Active Substance: DASATINIB
     Indication: Chronic myeloid leukaemia
     Dosage: 100 MILLIGRAM, QD
     Route: 048
     Dates: start: 20210618
  2. SPRYCEL [Suspect]
     Active Substance: DASATINIB
     Dosage: 80 MILLIGRAM, QD
     Route: 048
     Dates: start: 20210730, end: 202109
  3. SPRYCEL [Suspect]
     Active Substance: DASATINIB
     Dosage: 50 MILLLIGRAM, DAILY
     Route: 048
     Dates: start: 2021
  4. METOPROLOL [Suspect]
     Active Substance: METOPROLOL
     Indication: Palpitations
     Dosage: UNK
     Route: 065
  5. VITAMIN B-COMPLEX [VITAMIN B COMPLEX] [Concomitant]
     Indication: Product used for unknown indication
     Dosage: UNK
     Route: 065
  6. ASCORBIC ACID\RUTIN [Concomitant]
     Active Substance: ASCORBIC ACID\RUTIN
     Indication: Product used for unknown indication
     Dosage: UNK
     Route: 065
  7. VITAMIN D COMPLEX [Concomitant]
     Indication: Product used for unknown indication
     Dosage: UNK
     Route: 065

REACTIONS (10)
  - Constipation [Unknown]
  - Diarrhoea [Not Recovered/Not Resolved]
  - Dyschezia [Unknown]
  - Platelet count decreased [Unknown]
  - Dyspepsia [Unknown]
  - Nausea [Unknown]
  - Palpitations [Recovering/Resolving]
  - Blood pressure decreased [Unknown]
  - White blood cell count decreased [Unknown]
  - Heavy menstrual bleeding [Not Recovered/Not Resolved]
